FAERS Safety Report 10559093 (Version 1)
Quarter: 2014Q4

REPORT INFORMATION
  Report Type: Spontaneous
  Country: DE (occurrence: DE)
  Receive Date: 20141103
  Receipt Date: 20141103
  Transmission Date: 20150529
  Serious: Yes (Other)
  Sender: FDA-Public Use
  Company Number: DE-ASPEN PHARMA TRADING LIMITED US-AS-2014-006886

PATIENT
  Sex: Male
  Weight: 120 kg

DRUGS (1)
  1. ARIXTRA [Suspect]
     Active Substance: FONDAPARINUX SODIUM
     Indication: CORONARY ARTERY DISEASE
     Route: 065

REACTIONS (2)
  - Tendon rupture [Unknown]
  - Haematoma [Unknown]
